FAERS Safety Report 7868748-4 (Version None)
Quarter: 2011Q4

REPORT INFORMATION
  Report Type: 
  Country: None (occurrence: None)
  Receive Date: 20111028
  Receipt Date: 20101220
  Transmission Date: 20120403
  Serious: No
  Sender: FDA-Public Use
  Company Number: US-AMGEN-USASP2010010192

PATIENT
  Age: 45 Year
  Sex: Female

DRUGS (2)
  1. ENBREL [Suspect]
     Indication: PSORIATIC ARTHROPATHY
     Dates: start: 20080328
  2. ENBREL [Suspect]
     Indication: PSORIASIS

REACTIONS (2)
  - INJECTION SITE HAEMATOMA [None]
  - VULVOVAGINAL MYCOTIC INFECTION [None]
